FAERS Safety Report 8494679-5 (Version None)
Quarter: 2012Q3

REPORT INFORMATION
  Report Type: 
  Country: None (occurrence: None)
  Receive Date: 20120709
  Receipt Date: 20120703
  Transmission Date: 20120928
  Serious: Yes (Hospitalization)
  Sender: FDA-Public Use
  Company Number: US-BAYER-2011-090979

PATIENT
  Age: 47 Year
  Sex: Female
  Weight: 140.59 kg

DRUGS (3)
  1. YAZ [Suspect]
     Indication: CONTRACEPTION
     Dosage: UNK
     Dates: start: 20090401, end: 20090901
  2. METFORMIN HCL [Concomitant]
     Dosage: UNK
     Dates: start: 20040101
  3. LANTUS [Concomitant]
     Dosage: UNK
     Dates: start: 20090101

REACTIONS (9)
  - DEEP VEIN THROMBOSIS [None]
  - PAIN IN EXTREMITY [None]
  - PAIN [None]
  - EMOTIONAL DISTRESS [None]
  - ANXIETY [None]
  - PSYCHOLOGICAL TRAUMA [None]
  - MENTAL DISORDER [None]
  - OEDEMA PERIPHERAL [None]
  - INJURY [None]
